FAERS Safety Report 18074156 (Version 4)
Quarter: 2021Q1

REPORT INFORMATION
  Report Type: Report from Study
  Country: US (occurrence: US)
  Receive Date: 20200727
  Receipt Date: 20210304
  Transmission Date: 20210419
  Serious: No
  Sender: FDA-Public Use
  Company Number: NVSC2020US209892

PATIENT
  Sex: Female

DRUGS (1)
  1. MAYZENT [Suspect]
     Active Substance: SIPONIMOD
     Indication: MULTIPLE SCLEROSIS
     Dosage: 2 MG, QD
     Route: 048

REACTIONS (6)
  - Musculoskeletal disorder [Unknown]
  - Dysgraphia [Unknown]
  - Neck pain [Unknown]
  - Ill-defined disorder [Unknown]
  - Gait disturbance [Unknown]
  - Drug ineffective [Unknown]
